FAERS Safety Report 4392260-0 (Version None)
Quarter: 2004Q3

REPORT INFORMATION
  Report Type: 
  Country: None (occurrence: None)
  Receive Date: 20040702
  Receipt Date: 20040218
  Transmission Date: 20050211
  Serious: Yes (Other)
  Sender: FDA-Public Use
  Company Number: 2004UW02930

PATIENT
  Age: 74 Year
  Sex: Female
  Weight: 65.7716 kg

DRUGS (1)
  1. CRESTOR [Suspect]
     Indication: BLOOD TRIGLYCERIDES INCREASED
     Dosage: 10 MG PO
     Route: 048

REACTIONS (6)
  - BACK PAIN [None]
  - BLOOD URINE [None]
  - CHROMATURIA [None]
  - NAUSEA [None]
  - POLLAKIURIA [None]
  - VOMITING [None]
